FAERS Safety Report 5732515-8 (Version None)
Quarter: 2008Q2

REPORT INFORMATION
  Report Type: 
  Country: None (occurrence: None)
  Receive Date: 20080508
  Receipt Date: 20080501
  Transmission Date: 20081010
  Serious: Yes (Life-Threatening, Hospitalization, Disabling)
  Sender: FDA-Public Use
  Company Number: US-MERCK-0805USA00530

PATIENT
  Age: 61 Year
  Sex: Female

DRUGS (2)
  1. FOSAMAX [Suspect]
     Indication: OSTEOPENIA
     Route: 048
     Dates: start: 20080101, end: 20080401
  2. FOSAMAX [Suspect]
     Route: 048
     Dates: end: 20080301

REACTIONS (3)
  - ADVERSE EVENT [None]
  - ATRIAL FIBRILLATION [None]
  - TOOTH DISORDER [None]
